FAERS Safety Report 6034189-8 (Version None)
Quarter: 2009Q1

REPORT INFORMATION
  Report Type: 
  Country: None (occurrence: None)
  Receive Date: 20090108
  Receipt Date: 20081223
  Transmission Date: 20090719
  Serious: Yes (Death)
  Sender: FDA-Public Use
  Company Number: 000054

PATIENT
  Age: 53 Year
  Sex: Female

DRUGS (8)
  1. OMEPRAZOLE [Suspect]
  2. ASPIRIN /01428701/ [Suspect]
  3. VENLAFAXINE HCL [Suspect]
  4. FLUOXETINE HCL [Suspect]
  5. PROCHLORPERAZINE [Suspect]
  6. ACETAMINOPHEN W/DIPHENHYDRAMINE HYDROCHLORIDE [Suspect]
  7. ACETAMINOPHEN AND HYDROCODONE BITARTRATE [Suspect]
  8. CLINDAMYCIN HCL [Suspect]

REACTIONS (1)
  - COMPLETED SUICIDE [None]
